FAERS Safety Report 9292260 (Version 3)
Quarter: 2013Q4

REPORT INFORMATION
  Report Type: Spontaneous
  Country: US (occurrence: US)
  Receive Date: 20130516
  Receipt Date: 20131101
  Transmission Date: 20140711
  Serious: Yes (Other)
  Sender: FDA-Public Use
  Company Number: US-AMGEN-USASP2013033207

PATIENT
  Age: 77 Year
  Sex: Female

DRUGS (8)
  1. PROLIA [Suspect]
     Indication: OSTEOPOROSIS POSTMENOPAUSAL
     Dosage: UNK
     Route: 065
  2. SIMVASTATIN [Concomitant]
     Dosage: 20 MG, QD
  3. OMEPRAZOLE [Concomitant]
  4. METFORMIN [Concomitant]
     Dosage: 1000 MG, BID
  5. VITAMIN D                          /00107901/ [Concomitant]
     Dosage: 2000 MG, QD
  6. BABY ASPIRIN [Concomitant]
     Dosage: UNK UNK, QD
  7. VERAPAMIL [Concomitant]
     Dosage: 240 MG, UNK
  8. ENALAPRIL [Concomitant]

REACTIONS (14)
  - Phlebitis [Recovered/Resolved]
  - Post procedural infection [Recovered/Resolved]
  - Influenza like illness [Unknown]
  - Arthralgia [Unknown]
  - Bursitis [Unknown]
  - Blood pressure decreased [Unknown]
  - Urinary incontinence [Unknown]
  - Asthenia [Unknown]
  - Back pain [Unknown]
  - Hyperhidrosis [Unknown]
  - Procedural pain [Unknown]
  - Gait disturbance [Unknown]
  - Rash [Recovered/Resolved]
  - Pain in extremity [Unknown]
